FAERS Safety Report 25199382 (Version 1)
Quarter: 2025Q2

REPORT INFORMATION
  Report Type: Spontaneous
  Country: US (occurrence: US)
  Receive Date: 20250415
  Receipt Date: 20250415
  Transmission Date: 20250716
  Serious: No
  Sender: TEVA
  Company Number: US-TEVA-VS-3318374

PATIENT

DRUGS (1)
  1. QVAR [Suspect]
     Active Substance: BECLOMETHASONE DIPROPIONATE
     Indication: Bronchial hyperreactivity
     Route: 065

REACTIONS (5)
  - Wheezing [Unknown]
  - Rales [Unknown]
  - Product use in unapproved indication [Unknown]
  - Device failure [Unknown]
  - Insurance issue [Unknown]
